FAERS Safety Report 7383376-5 (Version None)
Quarter: 2011Q1

REPORT INFORMATION
  Report Type: 
  Country: None (occurrence: None)
  Receive Date: 20110330
  Receipt Date: 20101019
  Transmission Date: 20110831
  Serious: Yes (Hospitalization)
  Sender: FDA-Public Use
  Company Number: US-BAYER-201026860NA

PATIENT
  Sex: Female
  Weight: 84.091 kg

DRUGS (23)
  1. YASMIN [Suspect]
     Indication: DYSMENORRHOEA
  2. MOBIC [Concomitant]
  3. ALLEGRA D 24 HOUR [Concomitant]
  4. LORTAB [Concomitant]
     Dosage: 10 MG Q4H
  5. IBUPROFEN [Concomitant]
     Indication: PAIN
  6. STADOL [Concomitant]
     Indication: HEADACHE
     Route: 045
  7. YASMIN [Suspect]
     Indication: CONTRACEPTION
     Route: 048
     Dates: start: 20030101, end: 20050101
  8. UNCODEABLE ^UNCLASSIFIABLE^ [Concomitant]
  9. OXYCONTIN [Concomitant]
  10. SYNTHROID [Concomitant]
     Indication: THYROID DISORDER
  11. PHENTERMINE [Concomitant]
     Dosage: 15 MG (DAILY DOSE), ,
  12. LEVAQUIN [Concomitant]
     Dosage: 500 MG (DAILY DOSE), ,
  13. FOSAMAX [Concomitant]
     Indication: OSTEOPENIA
  14. ADVIL LIQUI-GELS [Concomitant]
  15. YASMIN [Suspect]
     Indication: PREMENSTRUAL SYNDROME
  16. RESPIRATORY SYSTEM [Concomitant]
     Indication: SINUS CONGESTION
  17. TOPAMAX [Concomitant]
     Dosage: 2 TABS DAILY
  18. AMITRIPTYLINE [Concomitant]
  19. VISTARIL [Concomitant]
     Indication: HEADACHE
  20. DURAPHEN FORTE [Concomitant]
     Indication: PULMONARY CONGESTION
     Dosage: ONE TAB Q12H
  21. LEVOXYL [Concomitant]
     Indication: THYROID DISORDER
     Dosage: 200 ?G (DAILY DOSE), ,
  22. UNCODEABLE ^UNCLASSIFIABLE^ [Concomitant]
     Indication: BACK PAIN
     Dates: start: 20050901
  23. ZYRTEC-D 12 HOUR [Concomitant]
     Dosage: 1 TAB DAILY

REACTIONS (4)
  - THROMBOSIS [None]
  - PAIN IN EXTREMITY [None]
  - DEPRESSION [None]
  - DEEP VEIN THROMBOSIS [None]
